FAERS Safety Report 11763754 (Version 1)
Quarter: 2015Q4

REPORT INFORMATION
  Report Type: Spontaneous
  Country: US (occurrence: US)
  Receive Date: 20151120
  Receipt Date: 20151120
  Transmission Date: 20160304
  Serious: No
  Sender: FDA-Public Use
  Company Number: US-ELI_LILLY_AND_COMPANY-US201304005616

PATIENT
  Age: 87 Year
  Sex: Female

DRUGS (1)
  1. FORTEO [Suspect]
     Active Substance: TERIPARATIDE
     Indication: OSTEOPOROSIS
     Dosage: UNK, QD
     Dates: start: 20130328

REACTIONS (6)
  - Peripheral swelling [Unknown]
  - Somnolence [Unknown]
  - Fatigue [Unknown]
  - Erythema [Unknown]
  - Hypersensitivity [Unknown]
  - Asthenia [Unknown]

NARRATIVE: CASE EVENT DATE: 20130331
